FAERS Safety Report 10617263 (Version 2)
Quarter: 2015Q1

REPORT INFORMATION
  Report Type: Report from Study
  Country: BR (occurrence: BR)
  Receive Date: 20141201
  Receipt Date: 20150326
  Transmission Date: 20150720
  Serious: Yes (Other)
  Sender: FDA-Public Use
  Company Number: BR-ABBVIE-14K-020-1312481-00

PATIENT
  Age: 61 Year
  Sex: Female
  Weight: 60 kg

DRUGS (5)
  1. HUMIRA [Suspect]
     Active Substance: ADALIMUMAB
     Indication: RHEUMATOID ARTHRITIS
     Route: 058
     Dates: end: 2012
  2. EVISTA [Concomitant]
     Active Substance: RALOXIFENE HYDROCHLORIDE
     Indication: BONE DECALCIFICATION
     Route: 048
  3. OSTEOFIX D3 [Concomitant]
     Indication: BONE DECALCIFICATION
     Route: 048
  4. ACTEMRA [Concomitant]
     Active Substance: TOCILIZUMAB
     Indication: ARTHRITIS
     Route: 042
     Dates: start: 201111
  5. PREDSIM [Concomitant]
     Active Substance: PREDNISOLONE
     Indication: ARTHRITIS
     Route: 048
     Dates: start: 1999

REACTIONS (9)
  - Effusion [Recovering/Resolving]
  - Pain [Recovered/Resolved]
  - Liver disorder [Recovered/Resolved]
  - Coagulopathy [Unknown]
  - Incision site pain [Not Recovered/Not Resolved]
  - Necrosis [Recovered/Resolved]
  - Drug ineffective [Recovered/Resolved]
  - Osteonecrosis [Recovered/Resolved]
  - Femur fracture [Recovered/Resolved]

NARRATIVE: CASE EVENT DATE: 201403
